FAERS Safety Report 8487695-0 (Version None)
Quarter: 2012Q3

REPORT INFORMATION
  Report Type: 
  Country: None (occurrence: None)
  Receive Date: 20120705
  Receipt Date: 20120625
  Transmission Date: 20120928
  Serious: Yes (Other)
  Sender: FDA-Public Use
  Company Number: BR-JNJFOC-20120613894

PATIENT
  Sex: Male
  Weight: 91 kg

DRUGS (2)
  1. REMICADE [Suspect]
     Route: 042
     Dates: start: 20110926
  2. REMICADE [Suspect]
     Indication: PSORIASIS
     Route: 042
     Dates: start: 20120621

REACTIONS (2)
  - HYPERAEMIA [None]
  - RESPIRATORY DISORDER [None]
